FAERS Safety Report 9325267 (Version 1)
Quarter: 2013Q2

REPORT INFORMATION
  Report Type: Report from Study
  Country: JP (occurrence: JP)
  Receive Date: 20130604
  Receipt Date: 20130604
  Transmission Date: 20140414
  Serious: Yes (Other)
  Sender: FDA-Public Use
  Company Number: JP-009507513-1306JPN000344

PATIENT
  Age: 8 Year
  Sex: 0

DRUGS (5)
  1. DECADRON PHOSPHATE INJECTION [Suspect]
     Dosage: UNK
  2. ALENDRONATE SODIUM [Suspect]
     Dosage: UNK
  3. TOCILIZUMAB [Suspect]
     Dosage: UNK
  4. FAMOTIDINE [Suspect]
     Dosage: UNK
  5. ACYCLOVIR [Suspect]
     Dosage: UNK

REACTIONS (1)
  - Hepatic function abnormal [Unknown]
